FAERS Safety Report 18510474 (Version 1)
Quarter: 2020Q4

REPORT INFORMATION
  Report Type: Spontaneous
  Country: US (occurrence: US)
  Receive Date: 20201117
  Receipt Date: 20201117
  Transmission Date: 20210114
  Serious: Yes (Other)
  Sender: FDA-Public Use
  Company Number: NVSC2020US305595

PATIENT
  Age: 3 Year

DRUGS (2)
  1. DABRAFENIB [Suspect]
     Active Substance: DABRAFENIB
     Indication: HAEMOPHAGOCYTIC LYMPHOHISTIOCYTOSIS
  2. DABRAFENIB [Suspect]
     Active Substance: DABRAFENIB
     Indication: HISTIOCYTOSIS
     Dosage: UNK
     Route: 065

REACTIONS (2)
  - Product use in unapproved indication [Unknown]
  - Acute myeloid leukaemia [Recovered/Resolved]
